FAERS Safety Report 11341245 (Version 3)
Quarter: 2016Q1

REPORT INFORMATION
  Report Type: Spontaneous
  Country: US (occurrence: US)
  Receive Date: 20150805
  Receipt Date: 20160203
  Transmission Date: 20160525
  Serious: Yes (Hospitalization)
  Sender: FDA-Public Use
  Company Number: US-AUROBINDO-AUR-APL-2015-06641

PATIENT
  Age: 25 Year
  Sex: Male

DRUGS (2)
  1. ONDANSETRON TABLET [Suspect]
     Active Substance: ONDANSETRON
     Indication: VOMITING
  2. ONDANSETRON TABLET [Suspect]
     Active Substance: ONDANSETRON
     Indication: NAUSEA
     Dosage: 40 DF, DAILY
     Route: 065

REACTIONS (9)
  - Headache [Recovered/Resolved]
  - Neurological examination abnormal [Recovered/Resolved]
  - Posterior reversible encephalopathy syndrome [Recovered/Resolved]
  - Brain oedema [Recovered/Resolved]
  - Haemorrhage [Recovered/Resolved]
  - Blindness [Recovered/Resolved]
  - Blood pressure increased [Recovered/Resolved]
  - Intracranial pressure increased [Recovered/Resolved]
  - Overdose [Recovered/Resolved]
